FAERS Safety Report 7678698-4 (Version None)
Quarter: 2011Q3

REPORT INFORMATION
  Report Type: 
  Country: None (occurrence: None)
  Receive Date: 20110811
  Receipt Date: 20110808
  Transmission Date: 20111222
  Serious: Yes (Life-Threatening)
  Sender: FDA-Public Use
  Company Number: JP-GILEAD-2011-0042763

PATIENT
  Sex: Male

DRUGS (9)
  1. EPIVIR [Suspect]
     Indication: HIV INFECTION
     Route: 048
     Dates: start: 20041115
  2. ISOSORBIDE DINITRATE [Concomitant]
     Dates: start: 20100831
  3. EFAVIRENZ [Suspect]
     Indication: HIV INFECTION
     Route: 048
     Dates: start: 20041115
  4. LIVALO [Concomitant]
     Dates: start: 20110329
  5. SIGMART [Concomitant]
     Dates: start: 20110330, end: 20110331
  6. ASPIRIN [Concomitant]
     Dates: start: 20110329
  7. LANSOPRAZOLE [Concomitant]
     Dates: start: 20110329
  8. NOVO HEPARIN [Concomitant]
     Dates: start: 20110330, end: 20110331
  9. VIREAD [Suspect]
     Indication: HIV INFECTION
     Route: 048
     Dates: start: 20051012

REACTIONS (1)
  - ACUTE MYOCARDIAL INFARCTION [None]
